FAERS Safety Report 23336071 (Version 2)
Quarter: 2024Q1

REPORT INFORMATION
  Report Type: Report from Study
  Country: FR (occurrence: None)
  Receive Date: 20231225
  Receipt Date: 20240201
  Transmission Date: 20240410
  Serious: Yes (Other)
  Sender: FDA-Public Use
  Company Number: 2023A290366

PATIENT
  Sex: Female

DRUGS (2)
  1. FASENRA [Suspect]
     Active Substance: BENRALIZUMAB
     Indication: Asthma
     Route: 058
  2. DUPIXENT [Concomitant]
     Active Substance: DUPILUMAB
     Dates: start: 202312

REACTIONS (2)
  - Asthma [Unknown]
  - Drug ineffective [Unknown]
